FAERS Safety Report 16350652 (Version 1)
Quarter: 2019Q2

REPORT INFORMATION
  Report Type: Other
  Country: DE (occurrence: DE)
  Receive Date: 20190524
  Receipt Date: 20190524
  Transmission Date: 20190711
  Serious: Yes (Other)
  Sender: FDA-Public Use
  Company Number: DE-CELLTRION INC.-2019DE021262

PATIENT

DRUGS (20)
  1. IFOSFAMIDE. [Suspect]
     Active Substance: IFOSFAMIDE
     Indication: DIFFUSE LARGE B-CELL LYMPHOMA
     Dosage: 2000 MG/M2
     Route: 065
     Dates: start: 201901
  2. VINCRISTINE [Suspect]
     Active Substance: VINCRISTINE
     Indication: DIFFUSE LARGE B-CELL LYMPHOMA
     Dosage: UNK, 6 CYCLE WITH RITUXIMAB
     Route: 065
     Dates: start: 201710, end: 201802
  3. METHOTREXATE. [Suspect]
     Active Substance: METHOTREXATE
     Indication: DIFFUSE LARGE B-CELL LYMPHOMA
     Dosage: 4000 MG/M2
     Route: 065
     Dates: start: 201901
  4. IBRUTINIB [Concomitant]
     Active Substance: IBRUTINIB
     Indication: DIFFUSE LARGE B-CELL LYMPHOMA
     Dosage: 560 MG
     Route: 065
     Dates: start: 20190212
  5. RITUXIMAB (UNKNOWN) [Suspect]
     Active Substance: RITUXIMAB
     Dosage: UNK, 2 CYCLES TOGETHER WITH BENDAMUSTINE
     Route: 065
     Dates: start: 201811, end: 201812
  6. PREDNISOLONE. [Suspect]
     Active Substance: PREDNISOLONE
     Indication: DIFFUSE LARGE B-CELL LYMPHOMA
     Dosage: UNK, 6 CYCLE WITH RITUXIMAB
     Route: 065
     Dates: start: 201710, end: 201802
  7. BENDAMUSTINE [Suspect]
     Active Substance: BENDAMUSTINE
     Indication: DIFFUSE LARGE B-CELL LYMPHOMA
     Dosage: UNK, 2 CYCLES TOGETHER WITH RITUXIMAB
     Route: 065
     Dates: start: 201811, end: 201812
  8. RITUXIMAB (UNKNOWN) [Suspect]
     Active Substance: RITUXIMAB
     Dosage: 375 MG/M2
     Route: 065
     Dates: start: 201901
  9. TOCILIZUMAB. [Suspect]
     Active Substance: TOCILIZUMAB
     Indication: DIFFUSE LARGE B-CELL LYMPHOMA
     Dosage: UNK
     Route: 065
     Dates: start: 20180812
  10. DEXAMETHASONE. [Suspect]
     Active Substance: DEXAMETHASONE
     Indication: DIFFUSE LARGE B-CELL LYMPHOMA
     Dosage: UNK, 2 CYCLES TOGETHER WITH RITUXIMAB
     Route: 065
     Dates: start: 201804, end: 201805
  11. CYTARABINE. [Suspect]
     Active Substance: CYTARABINE
     Indication: DIFFUSE LARGE B-CELL LYMPHOMA
     Dosage: UNK, 2 CYCLES TOGETHER WITH RITUXIMAB
     Route: 065
     Dates: start: 201804, end: 201805
  12. CYCLOPHOSPHAMIDE. [Suspect]
     Active Substance: CYCLOPHOSPHAMIDE
     Indication: DIFFUSE LARGE B-CELL LYMPHOMA
     Dosage: UNK, TOGETHER WITH FLUDARABIN IN ZUMA 1 TRAIL
     Route: 065
     Dates: start: 20180803
  13. CYCLOPHOSPHAMIDE. [Suspect]
     Active Substance: CYCLOPHOSPHAMIDE
     Dosage: UNK, 6 CYCLES TOGETHER WITH RITUXIMAB
     Route: 065
     Dates: start: 201710, end: 201802
  14. THIOTEPA. [Suspect]
     Active Substance: THIOTEPA
     Indication: DIFFUSE LARGE B-CELL LYMPHOMA
     Dosage: 40 MG/M2
     Route: 065
     Dates: start: 201901
  15. RITUXIMAB (UNKNOWN) [Suspect]
     Active Substance: RITUXIMAB
     Dosage: UNK, TOGETHER WITH DHAP
     Route: 065
     Dates: start: 201804, end: 201805
  16. RITUXIMAB (UNKNOWN) [Suspect]
     Active Substance: RITUXIMAB
     Indication: DIFFUSE LARGE B-CELL LYMPHOMA
     Dosage: UNK, 6 CYCLES TOGETHER WITH CHOEP
     Route: 065
     Dates: start: 201710, end: 201802
  17. CISPLATIN. [Suspect]
     Active Substance: CISPLATIN
     Indication: DIFFUSE LARGE B-CELL LYMPHOMA
     Dosage: UNK, 2 CYCLES TOGETHER WITH RITUXIMAB
     Route: 065
     Dates: start: 201804, end: 201805
  18. FLUDARABINE [Suspect]
     Active Substance: FLUDARABINE PHOSPHATE
     Indication: DIFFUSE LARGE B-CELL LYMPHOMA
     Dosage: UNK, TOGETHER WITH CYCLOPHOSPHAMIDE IN ZUMA 1 TRIAL
     Route: 065
     Dates: start: 20180803
  19. DEXAMETHASONE. [Suspect]
     Active Substance: DEXAMETHASONE
     Dosage: 4 MG, IN TOTAL
     Route: 065
     Dates: start: 201901
  20. DOXORUBICIN [Suspect]
     Active Substance: DOXORUBICIN
     Indication: DIFFUSE LARGE B-CELL LYMPHOMA
     Dosage: UNK, 6 CYCLES TOGETHER WITH RITUXIMAB
     Route: 065
     Dates: start: 201711, end: 201802

REACTIONS (3)
  - Hypotension [Unknown]
  - Acute kidney injury [Unknown]
  - Cytokine release syndrome [Unknown]

NARRATIVE: CASE EVENT DATE: 201808
